FAERS Safety Report 8129401 (Version 2)
Quarter: 2012Q4

REPORT INFORMATION
  Report Type: 
  Country: US (occurrence: None)
  Receive Date: 20110830
  Receipt Date: 20120910
  Transmission Date: 20130627
  Serious: Yes (Hospitalization)
  Sender: FDA-Public Use
  Company Number: AVE_02142_2011

PATIENT
  Age: 44 Year
  Sex: Female

DRUGS (4)
  1. CLONIDINE TRANSDERMAL SYSTEM [Suspect]
     Indication: HYPERTENSION
     Dosage: (VIA 1/WEEKLY)
     Route: 062
  2. HYDROCHLOROTHIAZIDE [Concomitant]
  3. SIMVASTATIN [Concomitant]
  4. METOPROLOL TARTRATE [Concomitant]

REACTIONS (3)
  - Coronary artery dissection [None]
  - Coronary artery stenosis [None]
  - Coronary artery occlusion [None]
